FAERS Safety Report 6154193-9 (Version None)
Quarter: 2009Q2

REPORT INFORMATION
  Report Type: 
  Country: None (occurrence: None)
  Receive Date: 20090414
  Receipt Date: 20090402
  Transmission Date: 20091009
  Serious: Yes (Hospitalization)
  Sender: FDA-Public Use
  Company Number: FR-JNJFOC-20090400745

PATIENT
  Age: 76 Year
  Sex: Female

DRUGS (7)
  1. DOXORUBICIN HCL [Suspect]
     Dosage: CYCLE 3
     Route: 042
  2. DOXORUBICIN HCL [Suspect]
     Indication: BREAST CANCER METASTATIC
     Dosage: CYCLES 1 AND 2
     Route: 042
  3. ALDALIX [Suspect]
     Indication: DRUG USE FOR UNKNOWN INDICATION
     Dosage: 50/20 MG
     Route: 048
  4. ANAFRANIL [Suspect]
     Indication: BREAST CANCER METASTATIC
     Route: 048
  5. FLUCONAZOLE [Suspect]
     Indication: DRUG USE FOR UNKNOWN INDICATION
     Route: 048
  6. PARIET [Concomitant]
     Route: 048
  7. INNOHEP [Concomitant]
     Route: 058

REACTIONS (1)
  - PEMPHIGOID [None]
